FAERS Safety Report 16632176 (Version 1)
Quarter: 2019Q3

REPORT INFORMATION
  Report Type: Spontaneous
  Country: US (occurrence: US)
  Receive Date: 20190725
  Receipt Date: 20190725
  Transmission Date: 20191004
  Serious: No
  Sender: FDA-Public Use
  Company Number: US-ABBVIE-18S-163-2496443-00

PATIENT
  Sex: Male

DRUGS (1)
  1. SYNTHROID [Suspect]
     Active Substance: LEVOTHYROXINE SODIUM
     Indication: BLOOD THYROID STIMULATING HORMONE INCREASED
     Route: 048
     Dates: start: 1982

REACTIONS (3)
  - Muscle spasms [Not Recovered/Not Resolved]
  - Night sweats [Not Recovered/Not Resolved]
  - Blood glucose increased [Not Recovered/Not Resolved]
